FAERS Safety Report 8926855 (Version 1)
Quarter: 2012Q4

REPORT INFORMATION
  Report Type: 
  Country: IT (occurrence: IT)
  Receive Date: 20121127
  Receipt Date: 20121127
  Transmission Date: 20130627
  Serious: Yes (Hospitalization, Other)
  Sender: FDA-Public Use
  Company Number: IT-ABBOTT-12P-083-0992136-00

PATIENT
  Age: 43 None
  Sex: Male

DRUGS (1)
  1. EN [Suspect]
     Indication: DEPRESSION
     Dosage: Total
     Route: 048
     Dates: start: 20120920, end: 20120921

REACTIONS (3)
  - Confusional state [Recovering/Resolving]
  - Drug abuse [Unknown]
  - Incorrect dose administered [Unknown]
